FAERS Safety Report 11358911 (Version 1)
Quarter: 2015Q3

REPORT INFORMATION
  Report Type: Spontaneous
  Country: US (occurrence: None)
  Receive Date: 20150807
  Receipt Date: 20150807
  Transmission Date: 20151125
  Serious: Yes (Hospitalization)
  Sender: FDA-Public Use
  Company Number: None

PATIENT
  Age: 70 Year
  Sex: Male
  Weight: 113.4 kg

DRUGS (2)
  1. CLAFORAN [Suspect]
     Active Substance: CEFOTAXIME SODIUM
     Indication: CELLULITIS
     Dosage: INTO A VEAIN
     Route: 042
     Dates: start: 20150718, end: 20150721
  2. NAPROXIN [Concomitant]
     Active Substance: NAPROXEN

REACTIONS (6)
  - Tendon rupture [None]
  - Inadequate analgesia [None]
  - Arthralgia [None]
  - Abasia [None]
  - Nausea [None]
  - Abdominal pain upper [None]

NARRATIVE: CASE EVENT DATE: 20150721
